FAERS Safety Report 21367891 (Version 3)
Quarter: 2022Q4

REPORT INFORMATION
  Report Type: Spontaneous
  Country: BR (occurrence: BR)
  Receive Date: 20220923
  Receipt Date: 20221223
  Transmission Date: 20230112
  Serious: Yes (Life-Threatening, Hospitalization)
  Sender: FDA-Public Use
  Company Number: BR-BoehringerIngelheim-2022-BI-193344

PATIENT
  Age: 76 Year
  Sex: Female
  Weight: 75 kg

DRUGS (7)
  1. OFEV [Suspect]
     Active Substance: NINTEDANIB
     Indication: Interstitial lung disease
     Dosage: ONE IN THE MORNING AND ONE AT NIGHT (10 AM AND 10 PM)
     Route: 048
     Dates: start: 2021
  2. OXYGEN [Concomitant]
     Active Substance: OXYGEN
     Indication: Product used for unknown indication
     Dosage: 5L/O2, VIA NASAL CATHETER
     Route: 045
  3. HYDROCHLOROTHIAZIDE [Concomitant]
     Active Substance: HYDROCHLOROTHIAZIDE
     Indication: Hypertension
     Dosage: IN THE MORNING
  4. LEVOFLOXACIN [Concomitant]
     Active Substance: LEVOFLOXACIN
     Indication: Product used for unknown indication
  5. PREDNISOLONE [Concomitant]
     Active Substance: PREDNISOLONE
     Indication: Product used for unknown indication
  6. CLENIL HFA [Concomitant]
     Indication: Product used for unknown indication
  7. ALBUTEROL [Concomitant]
     Active Substance: ALBUTEROL
     Indication: Product used for unknown indication

REACTIONS (11)
  - Feeling abnormal [Recovering/Resolving]
  - Oxygen saturation decreased [Recovering/Resolving]
  - Drug ineffective [Not Recovered/Not Resolved]
  - Oxygen saturation decreased [Unknown]
  - Product colour issue [Unknown]
  - Product blister packaging issue [Unknown]
  - Dyspnoea [Unknown]
  - Crepitations [Unknown]
  - Pallor [Unknown]
  - Dehydration [Unknown]
  - Polyuria [Unknown]

NARRATIVE: CASE EVENT DATE: 20220722
